FAERS Safety Report 24377086 (Version 1)
Quarter: 2024Q3

REPORT INFORMATION
  Report Type: Spontaneous
  Country: CN (occurrence: CN)
  Receive Date: 20240930
  Receipt Date: 20240930
  Transmission Date: 20241017
  Serious: Yes (Hospitalization)
  Sender: BEIGENE
  Company Number: CN-BEIGENE-BGN-2024-015236

PATIENT

DRUGS (2)
  1. TISLELIZUMAB [Suspect]
     Active Substance: TISLELIZUMAB
     Indication: Prostate cancer stage IV
     Dosage: 200 MILLIGRAM
     Route: 041
     Dates: start: 20240914
  2. PACLITAXEL [Suspect]
     Active Substance: PACLITAXEL
     Indication: Prostate cancer stage IV
     Dosage: 400 MILLIGRAM
     Route: 041
     Dates: start: 20240915

REACTIONS (1)
  - Myelosuppression [Recovering/Resolving]

NARRATIVE: CASE EVENT DATE: 20240921
